FAERS Safety Report 9323788 (Version 3)
Quarter: 2013Q3

REPORT INFORMATION
  Report Type: Spontaneous
  Country: JP (occurrence: JP)
  Receive Date: 20130603
  Receipt Date: 20130705
  Transmission Date: 20140515
  Serious: Yes (Other)
  Sender: FDA-Public Use
  Company Number: JP-JNJFOC-20130523115

PATIENT
  Age: 78 Year
  Sex: Male

DRUGS (2)
  1. REMICADE [Suspect]
     Indication: PSORIASIS
     Dosage: 3RD DOSE
     Route: 042
     Dates: start: 20120111
  2. REMICADE [Suspect]
     Indication: PSORIASIS
     Route: 042

REACTIONS (3)
  - Cellulitis [Recovered/Resolved]
  - Paradoxical drug reaction [Recovered/Resolved]
  - Psoriasis [Recovered/Resolved]
